FAERS Safety Report 9862407 (Version 1)
Quarter: 2014Q1

REPORT INFORMATION
  Report Type: Other
  Country: CA (occurrence: CA)
  Receive Date: 20140203
  Receipt Date: 20140203
  Transmission Date: 20141002
  Serious: Yes (Hospitalization, Other)
  Sender: FDA-Public Use
  Company Number: CA-NAPPMUNDI-GBR-2014-0016913

PATIENT
  Age: 30 Year
  Sex: Male

DRUGS (3)
  1. MORPHINE SULFATE [Suspect]
     Indication: PRODUCT USED FOR UNKNOWN INDICATION
     Route: 042
  2. IPRATROPIUM [Concomitant]
  3. SALBUTAMOL [Concomitant]
     Indication: ASTHMA

REACTIONS (8)
  - Substance abuse [Unknown]
  - Febrile neutropenia [Recovered/Resolved]
  - Chills [Recovered/Resolved]
  - Diarrhoea [Recovered/Resolved]
  - Pyrexia [Recovered/Resolved]
  - Abdominal pain [Recovered/Resolved]
  - Vomiting [Recovered/Resolved]
  - Nausea [Recovered/Resolved]
